FAERS Safety Report 8367501-5 (Version None)
Quarter: 2012Q2

REPORT INFORMATION
  Report Type: 
  Country: None (occurrence: None)
  Receive Date: 20120517
  Receipt Date: 20120328
  Transmission Date: 20120825
  Serious: No
  Sender: FDA-Public Use
  Company Number: US-GLAXOSMITHKLINE-A0972205A

PATIENT
  Age: 66 Year
  Sex: Male

DRUGS (5)
  1. OXYCODONE HYDROCHLORIDE [Concomitant]
  2. WARFARIN SODIUM [Concomitant]
  3. METOPROLOL SUCCINATE [Concomitant]
  4. VOTRIENT [Suspect]
     Indication: RENAL CANCER
     Dosage: 600MG PER DAY
     Route: 048
     Dates: start: 20110901, end: 20120101
  5. CALCIUM CARBONATE [Concomitant]

REACTIONS (1)
  - TREATMENT FAILURE [None]
